FAERS Safety Report 23063256 (Version 1)
Quarter: 2023Q4

REPORT INFORMATION
  Report Type: Report from Study
  Country: IT (occurrence: IT)
  Receive Date: 20231013
  Receipt Date: 20231013
  Transmission Date: 20240109
  Serious: Yes (Other)
  Sender: FDA-Public Use
  Company Number: None

PATIENT
  Age: 47 Year
  Sex: Female
  Weight: 50 kg

DRUGS (2)
  1. FLUOROURACIL [Suspect]
     Active Substance: FLUOROURACIL
     Indication: Biliary neoplasm
     Dosage: 3500 MG EVERY 14 DAYS AND 500 MG AS A BOLUS
     Dates: start: 20230829, end: 20230829
  2. IRINOTECAN [Suspect]
     Active Substance: IRINOTECAN
     Indication: Biliary neoplasm
     Dosage: 250 MG EVERY 14 DAYS
     Dates: start: 20230829, end: 20230829

REACTIONS (2)
  - Neutropenia [Not Recovered/Not Resolved]
  - Off label use [Not Recovered/Not Resolved]

NARRATIVE: CASE EVENT DATE: 20230912
